FAERS Safety Report 18897954 (Version 1)
Quarter: 2021Q1

REPORT INFORMATION
  Report Type: Spontaneous
  Country: US (occurrence: US)
  Receive Date: 20210216
  Receipt Date: 20210216
  Transmission Date: 20210420
  Serious: No
  Sender: FDA-Public Use
  Company Number: US-CELLTRION INC.-2021US001183

PATIENT

DRUGS (3)
  1. TRUXIMA [Suspect]
     Active Substance: RITUXIMAB-ABBS
     Dosage: 1000 MILLIGRAM ON DAY 1 AND DAY 15 THEN EVERY 6 MONTHS
     Dates: start: 20210108
  2. TRUXIMA [Suspect]
     Active Substance: RITUXIMAB-ABBS
     Indication: RELAPSING MULTIPLE SCLEROSIS
     Dosage: 1000 MILLIGRAM ON DAY 1 AND DAY 15 THEN EVERY 6 MONTHS
     Dates: start: 20200619
  3. TRUXIMA [Suspect]
     Active Substance: RITUXIMAB-ABBS
     Dosage: 1000 MILLIGRAM ON DAY 1 AND DAY 15 THEN EVERY 6 MONTHS
     Dates: start: 20210122

REACTIONS (1)
  - Off label use [Unknown]

NARRATIVE: CASE EVENT DATE: 20200619
